FAERS Safety Report 17728047 (Version 1)
Quarter: 2020Q2

REPORT INFORMATION
  Report Type: Spontaneous
  Country: US (occurrence: US)
  Receive Date: 20200429
  Receipt Date: 20200429
  Transmission Date: 20200714
  Serious: Yes (Death)
  Sender: FDA-Public Use
  Company Number: None

PATIENT
  Age: 48 Year
  Sex: Female
  Weight: 53.1 kg

DRUGS (9)
  1. PENICILLIN [Concomitant]
     Active Substance: PENICILLIN
  2. ONDANSETRON [Concomitant]
     Active Substance: ONDANSETRON
  3. ABRAXANE [Concomitant]
     Active Substance: PACLITAXEL
  4. AKYNZEO [Suspect]
     Active Substance: NETUPITANT\PALONOSETRON HYDROCHLORIDE
     Indication: BREAST CANCER
     Dosage: ?          OTHER FREQUENCY:ONCE WEEKLY;?
     Route: 042
     Dates: start: 20200109
  5. PROMETHAZINE [Concomitant]
     Active Substance: PROMETHAZINE HYDROCHLORIDE
  6. CARBOPLATIN. [Concomitant]
     Active Substance: CARBOPLATIN
  7. GEMCITABINE. [Concomitant]
     Active Substance: GEMCITABINE
  8. CALCIUM + VITAMIN D [Concomitant]
     Active Substance: CALCIUM\VITAMIN D
  9. XGEVA [Concomitant]
     Active Substance: DENOSUMAB

REACTIONS (1)
  - Disease progression [None]
